FAERS Safety Report 9055789 (Version 2)
Quarter: 2013Q1

REPORT INFORMATION
  Report Type: Report from Study
  Country: JP (occurrence: JP)
  Receive Date: 20130206
  Receipt Date: 20130308
  Transmission Date: 20140127
  Serious: Yes (Hospitalization)
  Sender: FDA-Public Use
  Company Number: JP-B.I. PHARMACEUTICALS,INC./RIDGEFIELD-2013-BI-02692GD

PATIENT
  Age: 86 Year
  Sex: Female
  Weight: 45 kg

DRUGS (1)
  1. DABIGATRAN ETEXILATE [Suspect]
     Indication: ATRIAL FIBRILLATION
     Dosage: 150 MG
     Route: 048
     Dates: start: 20110624, end: 20111108

REACTIONS (2)
  - Melaena [Recovered/Resolved]
  - Cardiac failure [Recovered/Resolved]
